FAERS Safety Report 17256827 (Version 2)
Quarter: 2020Q1

REPORT INFORMATION
  Report Type: Spontaneous
  Country: US (occurrence: US)
  Receive Date: 20200110
  Receipt Date: 20200203
  Transmission Date: 20200409
  Serious: No
  Sender: FDA-Public Use
  Company Number: US-ASTRAZENECA-2020SE01729

PATIENT
  Age: 66 Year
  Sex: Female
  Weight: 90.7 kg

DRUGS (2)
  1. BYDUREON BCISE [Suspect]
     Active Substance: EXENATIDE
     Indication: TYPE 2 DIABETES MELLITUS
     Route: 058
     Dates: start: 20191025
  2. BYDUREON BCISE [Suspect]
     Active Substance: EXENATIDE
     Indication: HAEMOGLOBIN ABNORMAL
     Route: 058
     Dates: start: 20191025

REACTIONS (3)
  - Weight decreased [Unknown]
  - Device leakage [Unknown]
  - Device use issue [Unknown]

NARRATIVE: CASE EVENT DATE: 2019
